FAERS Safety Report 8470453-0 (Version None)
Quarter: 2012Q2

REPORT INFORMATION
  Report Type: 
  Country: None (occurrence: None)
  Receive Date: 20120627
  Receipt Date: 20120619
  Transmission Date: 20120825
  Serious: Yes (Disabling)
  Sender: FDA-Public Use
  Company Number: US-US-EMD SERONO, INC.-7122799

PATIENT
  Sex: Female
  Weight: 68 kg

DRUGS (4)
  1. FLUOXETINE [Concomitant]
     Indication: PRODUCT USED FOR UNKNOWN INDICATION
  2. REBIF [Suspect]
     Indication: MULTIPLE SCLEROSIS
     Route: 058
     Dates: start: 20030901, end: 20120401
  3. LISINOPRIL [Concomitant]
     Indication: HYPERTENSION
  4. ASPIRIN [Concomitant]
     Indication: PROPHYLAXIS

REACTIONS (4)
  - MULTIPLE SCLEROSIS RELAPSE [None]
  - HEADACHE [None]
  - VISION BLURRED [None]
  - EYE INFLAMMATION [None]
